FAERS Safety Report 7248911-6 (Version None)
Quarter: 2011Q1

REPORT INFORMATION
  Report Type: 
  Country: None (occurrence: None)
  Receive Date: 20110128
  Receipt Date: 20100616
  Transmission Date: 20110831
  Serious: Yes (Hospitalization)
  Sender: FDA-Public Use
  Company Number: US-BAYER-201010381NA

PATIENT
  Sex: Female
  Weight: 87.982 kg

DRUGS (4)
  1. YASMIN [Suspect]
     Indication: PREMENSTRUAL SYNDROME
  2. YASMIN [Suspect]
     Indication: CONTRACEPTION
  3. LORATADINE [Concomitant]
     Dosage: UNK
  4. IMITREX [Concomitant]

REACTIONS (8)
  - HYPOAESTHESIA [None]
  - DYSPNOEA [None]
  - PULMONARY EMBOLISM [None]
  - CHEST PAIN [None]
  - MUSCULOSKELETAL CHEST PAIN [None]
  - PARAESTHESIA [None]
  - HYPERVENTILATION [None]
  - ANXIETY [None]
